FAERS Safety Report 9128960 (Version 1)
Quarter: 2013Q1

REPORT INFORMATION
  Report Type: Spontaneous
  Country: US (occurrence: US)
  Receive Date: 20130228
  Receipt Date: 20130228
  Transmission Date: 20140127
  Serious: No
  Sender: FDA-Public Use
  Company Number: US-009507513-1302USA013313

PATIENT
  Sex: Male

DRUGS (2)
  1. JANUMET XR [Suspect]
     Indication: BLOOD GLUCOSE INCREASED
     Dosage: 100/1000 MG TABLET ONCE DAILY
     Route: 048
     Dates: start: 2012
  2. JANUMET XR [Suspect]
     Dosage: 50/1000 MG TABLET, BID
     Route: 048

REACTIONS (1)
  - Drug ineffective [Not Recovered/Not Resolved]
